FAERS Safety Report 8913881 (Version 1)
Quarter: 2012Q4

REPORT INFORMATION
  Report Type: 
  Country: US (occurrence: US)
  Receive Date: 20121119
  Receipt Date: 20121119
  Transmission Date: 20130627
  Serious: Yes (Death)
  Sender: FDA-Public Use
  Company Number: US-JNJFOC-20121107763

PATIENT

DRUGS (1)
  1. 2-CDA [Suspect]
     Indication: MANTLE CELL LYMPHOMA
     Dosage: over 2 hours, on days 1 through 5 every 28 days
     Route: 042

REACTIONS (1)
  - Death [Fatal]
